FAERS Safety Report 13610421 (Version 1)
Quarter: 2017Q2

REPORT INFORMATION
  Report Type: Spontaneous
  Country: US (occurrence: US)
  Receive Date: 20170602
  Receipt Date: 20170602
  Transmission Date: 20170830
  Serious: No
  Sender: FDA-Public Use
  Company Number: None

PATIENT
  Age: 52 Year
  Sex: Female

DRUGS (1)
  1. SUTENT [Suspect]
     Active Substance: SUNITINIB MALATE
     Indication: RENAL CANCER
     Route: 048
     Dates: start: 20170124, end: 20170515

REACTIONS (4)
  - Abdominal discomfort [None]
  - Nervous system disorder [None]
  - Fatigue [None]
  - Pain in extremity [None]

NARRATIVE: CASE EVENT DATE: 20170512
